FAERS Safety Report 8763968 (Version 3)
Quarter: 2013Q1

REPORT INFORMATION
  Report Type: Spontaneous
  Country: US (occurrence: None)
  Receive Date: 20120828
  Receipt Date: 20130129
  Transmission Date: 20140127
  Serious: Yes (Death, Other)
  Sender: FDA-Public Use
  Company Number: TPA2012A05735

PATIENT
  Age: 81 Year
  Sex: Male

DRUGS (6)
  1. ACTOS [Suspect]
     Indication: TYPE 2 DIABETES MELLITUS
     Dates: start: 1993, end: 20010530
  2. METFORMIN (METFORMIN) [Concomitant]
  3. DIABETA (GLIBENCLAMIDE) [Concomitant]
  4. LANTUS (INSULIN GLARGINE) [Concomitant]
  5. JANUVIA (SITAGLIPTIN PHOSPHATE) [Concomitant]
  6. NOVOLOG (INSULIN ASPART) [Concomitant]

REACTIONS (1)
  - Bladder cancer [None]
